FAERS Safety Report 21195322 (Version 2)
Quarter: 2023Q1

REPORT INFORMATION
  Report Type: Spontaneous
  Country: JP (occurrence: JP)
  Receive Date: 20220810
  Receipt Date: 20230227
  Transmission Date: 20230417
  Serious: Yes (Death)
  Sender: FDA-Public Use
  Company Number: JP-ELI_LILLY_AND_COMPANY-JP202207010740

PATIENT
  Age: 35 Year
  Sex: Female

DRUGS (14)
  1. INSULIN GLARGINE [Suspect]
     Active Substance: INSULIN GLARGINE
     Indication: Diabetes mellitus
     Dosage: 16 INTERNATIONAL UNIT, EACH EVENING
     Route: 058
  2. INSULIN LISPRO [Suspect]
     Active Substance: INSULIN LISPRO
     Indication: Diabetes mellitus
     Dosage: 8 INTERNATIONAL UNIT, TID
     Route: 058
  3. METFORMIN [Concomitant]
     Active Substance: METFORMIN HYDROCHLORIDE
     Dosage: 250 MG, BID
  4. FLUNITRAZEPAM [Concomitant]
     Active Substance: FLUNITRAZEPAM
     Indication: Psychotic disorder
  5. ETIZOLAM [Concomitant]
     Active Substance: ETIZOLAM
     Indication: Psychotic disorder
  6. ZOPICLONE [Concomitant]
     Active Substance: ZOPICLONE
     Indication: Psychotic disorder
  7. MIRTAZAPINE [Concomitant]
     Active Substance: MIRTAZAPINE
     Indication: Psychotic disorder
  8. VALPROATE SODIUM [Concomitant]
     Active Substance: VALPROATE SODIUM
     Indication: Psychotic disorder
  9. CLONAZEPAM [Concomitant]
     Active Substance: CLONAZEPAM
     Indication: Psychotic disorder
  10. BLONANSERIN [Concomitant]
     Active Substance: BLONANSERIN
     Indication: Psychotic disorder
  11. ARIPIPRAZOLE [Concomitant]
     Active Substance: ARIPIPRAZOLE
     Indication: Psychotic disorder
  12. DAPAGLIFLOZIN [Concomitant]
     Active Substance: DAPAGLIFLOZIN
  13. LOXOPROFEN SODIUM [Concomitant]
     Active Substance: LOXOPROFEN SODIUM
  14. SUMATRIPTAN [Concomitant]
     Active Substance: SUMATRIPTAN

REACTIONS (3)
  - Completed suicide [Fatal]
  - Hypoglycaemia [Fatal]
  - Incorrect dose administered [Unknown]
